FAERS Safety Report 18606445 (Version 5)
Quarter: 2021Q1

REPORT INFORMATION
  Report Type: Report from Study
  Country: US (occurrence: US)
  Receive Date: 20201211
  Receipt Date: 20210124
  Transmission Date: 20210419
  Serious: Yes (Death, Hospitalization, Other)
  Sender: FDA-Public Use
  Company Number: US-BIOGEN-2020BI00953676

PATIENT
  Age: 66 Year
  Sex: Male

DRUGS (3)
  1. TECFIDERA [Suspect]
     Active Substance: DIMETHYL FUMARATE
     Dosage: MAINTENANCE DOSE
     Route: 065
     Dates: start: 20201114
  2. TECFIDERA [Suspect]
     Active Substance: DIMETHYL FUMARATE
     Indication: MULTIPLE SCLEROSIS
     Route: 065
     Dates: start: 20140122, end: 20181001
  3. TECFIDERA [Suspect]
     Active Substance: DIMETHYL FUMARATE
     Route: 065
     Dates: start: 20201106, end: 20210111

REACTIONS (12)
  - Blood pressure decreased [Recovered/Resolved]
  - Aphasia [Unknown]
  - Decubitus ulcer [Recovered/Resolved]
  - Death [Fatal]
  - Urinary tract infection [Recovered/Resolved]
  - Crystal urine present [Not Recovered/Not Resolved]
  - Abdominal discomfort [Recovered/Resolved]
  - Hypophagia [Unknown]
  - Abdominal pain upper [Recovered/Resolved]
  - Dyspnoea [Unknown]
  - General physical health deterioration [Unknown]
  - Headache [Recovered/Resolved]

NARRATIVE: CASE EVENT DATE: 2020
